FAERS Safety Report 10453383 (Version 1)
Quarter: 2014Q3

REPORT INFORMATION
  Report Type: Spontaneous
  Country: GB (occurrence: GB)
  Receive Date: 20140915
  Receipt Date: 20140915
  Transmission Date: 20150326
  Serious: Yes (Other)
  Sender: FDA-Public Use
  Company Number: PHHY2014GB112429

PATIENT
  Age: 27 Year
  Sex: Female
  Weight: 62 kg

DRUGS (10)
  1. TRIMETHOPRIM. [Concomitant]
     Active Substance: TRIMETHOPRIM
  2. FERROUS SULFATE [Concomitant]
     Active Substance: FERROUS SULFATE\FERROUS SULFATE, DRIED
  3. MICROGYNON [Concomitant]
     Active Substance: ETHINYL ESTRADIOL\LEVONORGESTREL ACETATE
  4. NAPROXEN. [Concomitant]
     Active Substance: NAPROXEN
  5. OMEPRAZOLE. [Concomitant]
     Active Substance: OMEPRAZOLE
  6. DERMOVATE [Concomitant]
     Active Substance: CLOBETASOL
  7. CETIRIZINE [Suspect]
     Active Substance: CETIRIZINE HYDROCHLORIDE
     Indication: DERMATITIS
     Route: 048
     Dates: start: 20140110, end: 20140823
  8. BETNOVATE [Concomitant]
     Active Substance: BETAMETHASONE
  9. LORATADINE. [Concomitant]
     Active Substance: LORATADINE
  10. RIGEVIDON [Concomitant]

REACTIONS (3)
  - Constipation [Recovering/Resolving]
  - Pain [Recovering/Resolving]
  - Haemorrhoids [Recovering/Resolving]

NARRATIVE: CASE EVENT DATE: 201401
